FAERS Safety Report 8003036-7 (Version None)
Quarter: 2011Q4

REPORT INFORMATION
  Report Type: 
  Country: None (occurrence: None)
  Receive Date: 20111222
  Receipt Date: 20111017
  Transmission Date: 20120403
  Serious: No
  Sender: FDA-Public Use
  Company Number: US-GLAXOSMITHKLINE-A0949624A

PATIENT
  Sex: Male

DRUGS (2)
  1. ANTIHYPERTENSIVE [Concomitant]
  2. AVODART [Suspect]
     Indication: BENIGN PROSTATIC HYPERPLASIA
     Route: 065

REACTIONS (2)
  - BLOOD PRESSURE DECREASED [None]
  - BLOOD PRESSURE NORMAL [None]
